FAERS Safety Report 9510939 (Version 4)
Quarter: 2015Q4

REPORT INFORMATION
  Report Type: Report from Study
  Country: US (occurrence: US)
  Receive Date: 20130910
  Receipt Date: 20151014
  Transmission Date: 20160305
  Serious: Yes (Hospitalization)
  Sender: FDA-Public Use
  Company Number: US-ROCHE-1232403

PATIENT
  Age: 62 Year
  Sex: Male

DRUGS (16)
  1. BACLOFEN. [Concomitant]
     Active Substance: BACLOFEN
     Route: 048
  2. AMPYRA [Concomitant]
     Active Substance: DALFAMPRIDINE
     Indication: MULTIPLE SCLEROSIS
     Route: 048
  3. AMPYRA [Concomitant]
     Active Substance: DALFAMPRIDINE
     Dosage: 1 TABLET 2 A DAY
     Route: 048
  4. MODAFINIL. [Concomitant]
     Active Substance: MODAFINIL
     Route: 048
  5. RITUXAN [Suspect]
     Active Substance: RITUXIMAB
     Route: 042
     Dates: start: 20140106
  6. TYSABRI [Concomitant]
     Active Substance: NATALIZUMAB
     Indication: MULTIPLE SCLEROSIS
     Route: 065
     Dates: end: 201111
  7. MONTELUKAST [Concomitant]
     Active Substance: MONTELUKAST SODIUM
     Indication: HYPERTENSION
     Route: 048
  8. VENLAFAXINE HCL [Concomitant]
     Active Substance: VENLAFAXINE HYDROCHLORIDE
     Route: 048
  9. BACLOFEN. [Concomitant]
     Active Substance: BACLOFEN
     Dosage: 1 TABLET 3 A DAY
     Route: 048
  10. BENADRYL [Concomitant]
     Active Substance: DIPHENHYDRAMINE HYDROCHLORIDE
     Route: 042
  11. ZOFRAN [Concomitant]
     Active Substance: ONDANSETRON HYDROCHLORIDE
     Dosage: 4-8 MG, PRN
     Route: 048
  12. SOLU-MEDROL [Concomitant]
     Active Substance: METHYLPREDNISOLONE SODIUM SUCCINATE
     Route: 042
  13. RITUXAN [Suspect]
     Active Substance: RITUXIMAB
     Indication: MULTIPLE SCLEROSIS
     Route: 042
  14. RITUXAN [Suspect]
     Active Substance: RITUXIMAB
     Route: 042
     Dates: start: 20150112
  15. RITUXAN [Suspect]
     Active Substance: RITUXIMAB
     Dosage: 375MG/M2, DAY 1 AND DAY 15
     Route: 042
     Dates: start: 20120615
  16. RITUXAN [Suspect]
     Active Substance: RITUXIMAB
     Dosage: 375MG/M2, DAY 1 AND DAY 15
     Route: 042
     Dates: start: 20120601

REACTIONS (16)
  - Unevaluable event [Unknown]
  - Pollakiuria [Unknown]
  - Seasonal allergy [Unknown]
  - Insomnia [Unknown]
  - Muscular weakness [Unknown]
  - Fall [Not Recovered/Not Resolved]
  - Asthenia [Not Recovered/Not Resolved]
  - Fall [Unknown]
  - Fatigue [Unknown]
  - White blood cell disorder [Not Recovered/Not Resolved]
  - Mobility decreased [Not Recovered/Not Resolved]
  - Gait spastic [Unknown]
  - Ill-defined disorder [Not Recovered/Not Resolved]
  - Muscle spasms [Unknown]
  - Gait disturbance [Unknown]
  - Hypertonia [Unknown]

NARRATIVE: CASE EVENT DATE: 201307
